FAERS Safety Report 6561480-9 (Version None)
Quarter: 2010Q1

REPORT INFORMATION
  Report Type: 
  Country: None (occurrence: None)
  Receive Date: 20100130
  Receipt Date: 20091015
  Transmission Date: 20100710
  Serious: No
  Sender: FDA-Public Use
  Company Number: US-ABBOTT-09P-163-0603421-00

PATIENT
  Sex: Female
  Weight: 94.432 kg

DRUGS (7)
  1. HUMIRA [Suspect]
     Indication: RHEUMATOID ARTHRITIS
     Dates: start: 20080101
  2. SYNTHROID [Concomitant]
     Indication: HYPOTHYROIDISM
  3. CELEBREX [Concomitant]
     Indication: RHEUMATOID ARTHRITIS
  4. METHOTREXATE [Concomitant]
     Indication: RHEUMATOID ARTHRITIS
  5. XALATAN [Concomitant]
     Indication: DRY EYE
     Dosage: 1 DROP PER EYE EACH DAY
     Route: 047
  6. ALPHAGAN [Concomitant]
     Indication: DRY EYE
     Dosage: 1 DROP IN EACH EYE EVERY DAY
     Route: 047
  7. NEXIUM [Concomitant]
     Indication: GASTROOESOPHAGEAL REFLUX DISEASE

REACTIONS (1)
  - INJECTION SITE PAIN [None]
